FAERS Safety Report 8421941-4 (Version None)
Quarter: 2012Q2

REPORT INFORMATION
  Report Type: 
  Country: None (occurrence: None)
  Receive Date: 20120608
  Receipt Date: 20120601
  Transmission Date: 20120825
  Serious: Yes (Hospitalization)
  Sender: FDA-Public Use
  Company Number: PHHY2012JP030116

PATIENT
  Age: 13 Year
  Sex: Male
  Weight: 75 kg

DRUGS (4)
  1. LAMOTRIGINE [Suspect]
     Dosage: 45 MG, UNK
  2. CLONAZEPAM [Concomitant]
  3. VALPROIC ACID [Concomitant]
     Dosage: 800 MG, UNK
  4. LAMOTRIGINE [Suspect]
     Indication: PETIT MAL EPILEPSY
     Dosage: 5 MG, UNK

REACTIONS (4)
  - INAPPROPRIATE ANTIDIURETIC HORMONE SECRETION [None]
  - HYPONATRAEMIA [None]
  - EPILEPSY [None]
  - AGITATION [None]
